FAERS Safety Report 4614805-5 (Version None)
Quarter: 2005Q1

REPORT INFORMATION
  Report Type: 
  Country: None (occurrence: None)
  Receive Date: 20050322
  Receipt Date: 20050316
  Transmission Date: 20050727
  Serious: Yes (Other)
  Sender: FDA-Public Use
  Company Number: PHBS2005JP03897

PATIENT
  Age: 73 Year
  Sex: Male

DRUGS (2)
  1. SANDOSTATIN [Suspect]
     Dosage: 50 UG, BID
     Route: 058
     Dates: start: 20050223, end: 20050314
  2. FOY [Concomitant]
     Route: 042

REACTIONS (2)
  - BASOPHIL COUNT INCREASED [None]
  - WHITE BLOOD CELL COUNT INCREASED [None]
